FAERS Safety Report 5083556-8 (Version None)
Quarter: 2006Q3

REPORT INFORMATION
  Report Type: 
  Country: None (occurrence: None)
  Receive Date: 20060814
  Receipt Date: 20060804
  Transmission Date: 20061208
  Serious: Yes (Death, Disabling, Other)
  Sender: FDA-Public Use
  Company Number: 2006053480

PATIENT
  Age: 70 Year
  Sex: Male
  Weight: 66 kg

DRUGS (4)
  1. ZYVOX [Suspect]
     Indication: PYOTHORAX
     Dosage: 1200 MG (600 MG, 2 IN 1 D), INTRAVENOUS
     Route: 042
     Dates: start: 20060328, end: 20060410
  2. ZYVOX [Suspect]
     Indication: STAPHYLOCOCCAL INFECTION
     Dosage: 1200 MG (600 MG, 2 IN 1 D), INTRAVENOUS
     Route: 042
     Dates: start: 20060328, end: 20060410
  3. DOPAMINE HCL [Concomitant]
  4. SOLUDACTONE (POTASSIUM CANRENOATE, TROMETAMOL) [Concomitant]

REACTIONS (3)
  - CONDITION AGGRAVATED [None]
  - MEDIASTINITIS [None]
  - PLATELET COUNT DECREASED [None]
